FAERS Safety Report 9462430 (Version 1)
Quarter: 2013Q3

REPORT INFORMATION
  Report Type: Spontaneous
  Country: US (occurrence: US)
  Receive Date: 20130816
  Receipt Date: 20130816
  Transmission Date: 20140515
  Serious: Yes (Congenital Anomaly)
  Sender: FDA-Public Use
  Company Number: US-TARO-2013P1016876

PATIENT
  Sex: Male

DRUGS (2)
  1. ACETAZOLAMIDE TABLETS 250 MG [Suspect]
     Route: 064
  2. ACETAZOLAMIDE TABLETS 250 MG [Suspect]
     Route: 064

REACTIONS (5)
  - Limb malformation [Not Recovered/Not Resolved]
  - Body height below normal [Not Recovered/Not Resolved]
  - Cardiac murmur [Not Recovered/Not Resolved]
  - Developmental delay [Not Recovered/Not Resolved]
  - Exposure during pregnancy [Recovered/Resolved with Sequelae]
